FAERS Safety Report 13839636 (Version 1)
Quarter: 2017Q3

REPORT INFORMATION
  Report Type: Spontaneous
  Country: US (occurrence: US)
  Receive Date: 20170805
  Receipt Date: 20170805
  Transmission Date: 20171127
  Serious: No
  Sender: FDA-Public Use
  Company Number: None

PATIENT
  Age: 59 Year
  Sex: Male

DRUGS (14)
  1. CEPACOL [Concomitant]
     Active Substance: BENZOCAINE
  2. LANSOPRAZOLE. [Concomitant]
     Active Substance: LANSOPRAZOLE
  3. DOCUSATE [Concomitant]
     Active Substance: DOCUSATE
  4. ONDANSETRON [Concomitant]
     Active Substance: ONDANSETRON
  5. MEROPENEM. [Concomitant]
     Active Substance: MEROPENEM
  6. SENNA [Concomitant]
     Active Substance: SENNA LEAF\SENNOSIDES\SENNOSIDES A AND B
  7. ACETAMINOPHEN. [Concomitant]
     Active Substance: ACETAMINOPHEN
  8. CASPOFUNGIN [Concomitant]
     Active Substance: CASPOFUNGIN
  9. ENOXAPARIN [Concomitant]
     Active Substance: ENOXAPARIN
  10. MORPHINE [Concomitant]
     Active Substance: MORPHINE
  11. VANCOMYCIN [Suspect]
     Active Substance: VANCOMYCIN
  12. BISACODYL. [Concomitant]
     Active Substance: BISACODYL
  13. MAALOX ANTACID [Concomitant]
     Active Substance: ALUMINUM HYDROXIDE\DIMETHICONE\MAGNESIUM HYDROXIDE
  14. PANCREALIPASE [Concomitant]
     Active Substance: PANCRELIPASE

REACTIONS (3)
  - Pancreatitis necrotising [None]
  - Blood creatinine increased [None]
  - Abdominal pain [None]

NARRATIVE: CASE EVENT DATE: 20170423
